FAERS Safety Report 7463785-6 (Version None)
Quarter: 2011Q2

REPORT INFORMATION
  Report Type: 
  Country: None (occurrence: None)
  Receive Date: 20110506
  Receipt Date: 20110428
  Transmission Date: 20111010
  Serious: Yes (Death, Life-Threatening, Hospitalization, Other)
  Sender: FDA-Public Use
  Company Number: MX-SANOFI-AVENTIS-2011SA026575

PATIENT
  Age: 79 Year
  Sex: Male

DRUGS (4)
  1. FUROSEMIDE [Concomitant]
     Indication: PRODUCT USED FOR UNKNOWN INDICATION
     Route: 048
     Dates: end: 20110330
  2. ATACAND [Concomitant]
     Route: 048
     Dates: start: 20000101, end: 20110330
  3. BI-EUGLUCON [Concomitant]
     Indication: TYPE 2 DIABETES MELLITUS
     Route: 048
     Dates: start: 20000101, end: 20070101
  4. LANTUS [Suspect]
     Indication: TYPE 2 DIABETES MELLITUS
     Route: 058
     Dates: start: 20070101, end: 20110330

REACTIONS (7)
  - MYOCARDIAL INFARCTION [None]
  - CARDIAC FAILURE [None]
  - DYSAESTHESIA [None]
  - HYPERHIDROSIS [None]
  - CHEST PAIN [None]
  - ANXIETY [None]
  - FATIGUE [None]
